FAERS Safety Report 5158677-1 (Version None)
Quarter: 2006Q4

REPORT INFORMATION
  Report Type: 
  Country: None (occurrence: None)
  Receive Date: 20061128
  Receipt Date: 20061119
  Transmission Date: 20070319
  Serious: No
  Sender: FDA-Public Use
  Company Number: ES-ELI_LILLY_AND_COMPANY-ES200611004336

PATIENT
  Age: 59 Year
  Sex: Male

DRUGS (1)
  1. CIALIS [Suspect]
     Indication: ERECTILE DYSFUNCTION
     Dates: start: 20030101

REACTIONS (3)
  - RETINAL PIGMENT EPITHELIOPATHY [None]
  - VITREOUS DETACHMENT [None]
  - VITREOUS FLOATERS [None]
